FAERS Safety Report 7386202-3 (Version None)
Quarter: 2011Q1

REPORT INFORMATION
  Report Type: 
  Country: None (occurrence: None)
  Receive Date: 20110331
  Receipt Date: 20110303
  Transmission Date: 20110831
  Serious: Yes (Hospitalization, Other)
  Sender: FDA-Public Use
  Company Number: US-BAYER-201037746NA

PATIENT
  Sex: Female
  Weight: 63 kg

DRUGS (6)
  1. YAZ [Suspect]
     Indication: CONTRACEPTION
     Dosage: UNK UNK, UNK
     Route: 048
     Dates: start: 20080101, end: 20080801
  2. YAZ [Suspect]
     Indication: PREMENSTRUAL SYNDROME
  3. DEPO-PROVERA [Concomitant]
  4. UNCODEABLE ^UNCLASSIFIABLE^ [Concomitant]
     Dosage: UNK
     Route: 048
     Dates: start: 20080116
  5. ACETAMINOPHEN AND HYDROCODONE BITARTRATE [Concomitant]
     Dosage: UNK
     Route: 048
     Dates: start: 20080215
  6. CEPHALEXIN [Concomitant]
     Dosage: UNK
     Route: 048
     Dates: start: 20080220

REACTIONS (1)
  - PULMONARY EMBOLISM [None]
